FAERS Safety Report 10186143 (Version 2)
Quarter: 2014Q2

REPORT INFORMATION
  Report Type: Spontaneous
  Country: TH (occurrence: TH)
  Receive Date: 20140521
  Receipt Date: 20140529
  Transmission Date: 20141212
  Serious: Yes (Other)
  Sender: FDA-Public Use
  Company Number: TH-PFIZER INC-2014137067

PATIENT
  Age: 45 Year
  Sex: Female
  Weight: 67 kg

DRUGS (3)
  1. LYRICA [Suspect]
     Indication: BACK PAIN
     Dosage: 25 MG, 2X/DAY
     Route: 048
  2. ARCOXIA [Concomitant]
     Indication: BACK PAIN
     Dosage: UNK
  3. MYONAL [Concomitant]
     Indication: BACK PAIN
     Dosage: UNK

REACTIONS (5)
  - Suicide attempt [Recovering/Resolving]
  - Depression [Recovering/Resolving]
  - Weight decreased [Unknown]
  - Decreased appetite [Unknown]
  - Stress [Unknown]
